FAERS Safety Report 14226254 (Version 1)
Quarter: 2017Q4

REPORT INFORMATION
  Report Type: Spontaneous
  Country: DE (occurrence: DE)
  Receive Date: 20171127
  Receipt Date: 20171127
  Transmission Date: 20180321
  Serious: No
  Sender: FDA-Public Use
  Company Number: DE-B. BRAUN MEDICAL INC.-2036026

PATIENT
  Age: 6 Year
  Sex: Male
  Weight: 16 kg

DRUGS (2)
  1. THIOTEPA. [Concomitant]
     Active Substance: THIOTEPA
     Route: 042
     Dates: start: 20170109, end: 20170112
  2. METRONIDAZOLE. [Suspect]
     Active Substance: METRONIDAZOLE
     Indication: CLOSTRIDIUM DIFFICILE INFECTION
     Route: 042
     Dates: start: 20170112, end: 20170115

REACTIONS (1)
  - Drug eruption [Recovered/Resolved]
